FAERS Safety Report 25943215 (Version 1)
Quarter: 2025Q4

REPORT INFORMATION
  Report Type: Spontaneous
  Country: US (occurrence: None)
  Receive Date: 20251020
  Receipt Date: 20251020
  Transmission Date: 20260118
  Serious: Yes (Hospitalization)
  Sender: FDA-CTU
  Company Number: None

PATIENT
  Sex: Male

DRUGS (11)
  1. LENALIDOMIDE [Suspect]
     Active Substance: LENALIDOMIDE
     Indication: Plasma cell myeloma
     Dosage: OTHER FREQUENCY : EVERY DAY FOR 21 DAYS THEN FOLLOWED BY 7 DAYS OFF EVERY 28 DAYS;?
     Route: 048
     Dates: start: 20251014
  2. ALLOPURINOL [Concomitant]
     Active Substance: ALLOPURINOL
  3. AMITRIPTYLINE [Concomitant]
     Active Substance: AMITRIPTYLINE
  4. ATORVASTATIN [Concomitant]
     Active Substance: ATORVASTATIN
  5. CHLORD/CLIDI [Concomitant]
  6. COLCHICINE [Concomitant]
     Active Substance: COLCHICINE
  7. DEXAMETHASONE [Concomitant]
     Active Substance: DEXAMETHASONE
  8. FUROSEMIDE [Concomitant]
     Active Substance: FUROSEMIDE
  9. GABAPENTIN [Concomitant]
     Active Substance: GABAPENTIN
  10. LUMIGAN SOL 0.01% OP [Concomitant]
  11. METFORMIN [Concomitant]
     Active Substance: METFORMIN HYDROCHLORIDE

REACTIONS (14)
  - Flank pain [None]
  - Muscular weakness [None]
  - Malaise [None]
  - Fatigue [None]
  - Vision blurred [None]
  - Dyspnoea exertional [None]
  - Peripheral swelling [None]
  - Constipation [None]
  - Dyspepsia [None]
  - Nausea [None]
  - Back pain [None]
  - Myalgia [None]
  - Rash [None]
  - Dizziness [None]
